FAERS Safety Report 10265981 (Version 1)
Quarter: 2014Q2

REPORT INFORMATION
  Report Type: Report from Study
  Country: US (occurrence: US)
  Receive Date: 20140627
  Receipt Date: 20140627
  Transmission Date: 20141212
  Serious: Yes (Other)
  Sender: FDA-Public Use
  Company Number: US-ABBVIE-14P-163-1251588-00

PATIENT
  Age: 69 Year
  Sex: Female

DRUGS (23)
  1. HUMIRA [Suspect]
     Indication: CROHN^S DISEASE
     Dates: start: 20140310
  2. OMEPRAZOLE [Concomitant]
     Indication: GASTROOESOPHAGEAL REFLUX DISEASE
  3. SOTALOL [Concomitant]
     Indication: ATRIAL FIBRILLATION
  4. LASIX [Concomitant]
     Indication: PERICARDIAL EFFUSION
  5. POTASSIUM [Concomitant]
     Indication: PRODUCT USED FOR UNKNOWN INDICATION
  6. PRADAXA [Concomitant]
     Indication: ANTICOAGULANT THERAPY
  7. BISOPROLOL/HCTZ [Concomitant]
     Indication: HYPERTENSION
     Dosage: 5/6.25MG DAILY
  8. WELCHOL [Concomitant]
     Indication: PRODUCT USED FOR UNKNOWN INDICATION
  9. LEVOTHYROXINE [Concomitant]
     Indication: HYPOTHYROIDISM
  10. ASA [Concomitant]
     Indication: PRODUCT USED FOR UNKNOWN INDICATION
  11. CLONAZEPAM [Concomitant]
     Indication: NECK PAIN
  12. AMLODIPINE [Concomitant]
     Indication: HYPERTENSION
  13. CITALOPRAM [Concomitant]
     Indication: ANTIDEPRESSANT THERAPY
     Dosage: AT BEDTIME
  14. MAG OXIDE [Concomitant]
     Indication: MINERAL SUPPLEMENTATION
  15. VITAMIN B12 [Concomitant]
     Indication: PRODUCT USED FOR UNKNOWN INDICATION
  16. VITRON C [Concomitant]
     Indication: PRODUCT USED FOR UNKNOWN INDICATION
  17. IRON [Concomitant]
     Indication: PRODUCT USED FOR UNKNOWN INDICATION
  18. VIT E [Concomitant]
     Indication: PRODUCT USED FOR UNKNOWN INDICATION
  19. MULTIVITAMINS [Concomitant]
     Indication: VITAMIN SUPPLEMENTATION
     Dosage: DAILY
  20. CALCIUM CITRATE [Concomitant]
     Indication: BONE DISORDER
  21. BENAZEPRIL [Concomitant]
     Indication: BLOOD PRESSURE
  22. PENTASA [Concomitant]
     Indication: PRODUCT USED FOR UNKNOWN INDICATION
  23. MERCAPTOPURINE [Concomitant]
     Indication: PRODUCT USED FOR UNKNOWN INDICATION

REACTIONS (5)
  - Renal impairment [Unknown]
  - Skin lesion [Unknown]
  - Constipation [Recovering/Resolving]
  - Weight decreased [Unknown]
  - Glomerular filtration rate decreased [Unknown]
